FAERS Safety Report 5939870-4 (Version None)
Quarter: 2008Q4

REPORT INFORMATION
  Report Type: 
  Country: None (occurrence: None)
  Receive Date: 20081104
  Receipt Date: 20081023
  Transmission Date: 20090506
  Serious: Yes (Other)
  Sender: FDA-Public Use
  Company Number: CA-JNJFOC-20081001922

PATIENT
  Age: 53 Year
  Sex: Female

DRUGS (6)
  1. RALIVIA [Suspect]
     Indication: PAIN
     Route: 065
  2. ZESTRIL [Concomitant]
  3. HYDROCHLOROTHIAZIDE [Concomitant]
  4. ADVIL [Concomitant]
  5. TYLENOL [Concomitant]
  6. VITAMINS [Concomitant]

REACTIONS (3)
  - AKATHISIA [None]
  - INSOMNIA [None]
  - RESTLESSNESS [None]
